FAERS Safety Report 10418013 (Version 2)
Quarter: 2015Q3

REPORT INFORMATION
  Report Type: Report from Study
  Country: US (occurrence: US)
  Receive Date: 20140829
  Receipt Date: 20150825
  Transmission Date: 20151125
  Serious: Yes (Other)
  Sender: FDA-Public Use
  Company Number: US-ALEXION-A201305632

PATIENT

DRUGS (1)
  1. SOLIRIS [Suspect]
     Active Substance: ECULIZUMAB
     Indication: PAROXYSMAL NOCTURNAL HAEMOGLOBINURIA
     Dosage: UNK
     Route: 042

REACTIONS (4)
  - Serum ferritin increased [Recovering/Resolving]
  - Haemoglobin decreased [Unknown]
  - Extravascular haemolysis [Not Recovered/Not Resolved]
  - Asthenia [Unknown]
